FAERS Safety Report 6853020-1 (Version None)
Quarter: 2010Q3

REPORT INFORMATION
  Report Type: 
  Country: None (occurrence: None)
  Receive Date: 20100717
  Receipt Date: 20071127
  Transmission Date: 20110219
  Serious: No
  Sender: FDA-Public Use
  Company Number: US-PFIZER INC-2007101597

PATIENT
  Sex: Female
  Weight: 72.7 kg

DRUGS (7)
  1. CHANTIX [Suspect]
     Indication: SMOKING CESSATION THERAPY
     Dates: start: 20071114
  2. KLONOPIN [Concomitant]
  3. PROLIXIN [Concomitant]
  4. COGENTIN [Concomitant]
  5. PAMELOR [Concomitant]
  6. LEXAPRO [Concomitant]
  7. LIPITOR [Concomitant]

REACTIONS (1)
  - DEPRESSION [None]
